FAERS Safety Report 9933873 (Version 2)
Quarter: 2014Q1

REPORT INFORMATION
  Report Type: Report from Study
  Country: US (occurrence: US)
  Receive Date: 20140228
  Receipt Date: 20140228
  Transmission Date: 20141002
  Serious: No
  Sender: FDA-Public Use
  Company Number: US-MYLANLABS-2013S1017621

PATIENT
  Age: 18 Year
  Sex: Male
  Weight: 113 kg

DRUGS (3)
  1. MYORISAN [Suspect]
  2. CLARAVIS [Suspect]
  3. AMNESTEEM CAPSULES [Suspect]

REACTIONS (4)
  - Bronchitis [Not Recovered/Not Resolved]
  - Viral infection [Not Recovered/Not Resolved]
  - Conjunctivitis [Not Recovered/Not Resolved]
  - Mouth ulceration [Not Recovered/Not Resolved]
